FAERS Safety Report 17185134 (Version 2)
Quarter: 2020Q1

REPORT INFORMATION
  Report Type: Spontaneous
  Country: US (occurrence: US)
  Receive Date: 20191220
  Receipt Date: 20200121
  Transmission Date: 20200409
  Serious: No
  Sender: FDA-Public Use
  Company Number: US-VERTEX PHARMACEUTICALS-2019-012789

PATIENT
  Sex: Female

DRUGS (13)
  1. TOBI [Concomitant]
     Active Substance: TOBRAMYCIN
  2. VIMPAT [Concomitant]
     Active Substance: LACOSAMIDE
  3. MUCOMYST [ACETYLCYSTEINE] [Concomitant]
  4. CAYSTON [Concomitant]
     Active Substance: AZTREONAM
  5. AZITHROMYCIN ANHYDROUS. [Concomitant]
     Active Substance: AZITHROMYCIN ANHYDROUS
  6. TRIKAFTA [Suspect]
     Active Substance: ELEXACAFTOR\IVACAFTOR\TEZACAFTOR
     Indication: CYSTIC FIBROSIS
     Dosage: 2 TABLETS OF 100MG ELEXACAFTOR/ 50 MG TEZACAFTOR/ 75 MG IVACAFTOR AM; 1 TABLET 150 MG IVACAFTOR PM
     Route: 048
     Dates: start: 20191130
  7. CALCIUM [Concomitant]
     Active Substance: CALCIUM
  8. HYPERTONIC SALINE SOLUTION [Concomitant]
     Active Substance: SODIUM CHLORIDE
  9. VITAMIN D [COLECALCIFEROL] [Concomitant]
     Active Substance: CHOLECALCIFEROL
  10. DORNASE [Concomitant]
     Active Substance: STREPTODORNASE\STREPTOKINASE
  11. ALBUTEROL [SALBUTAMOL] [Concomitant]
     Active Substance: ALBUTEROL
  12. KEPPRA [Concomitant]
     Active Substance: LEVETIRACETAM
  13. CREON [Concomitant]
     Active Substance: PANCRELIPASE AMYLASE\PANCRELIPASE LIPASE\PANCRELIPASE PROTEASE

REACTIONS (1)
  - Parosmia [Unknown]

NARRATIVE: CASE EVENT DATE: 2019
